FAERS Safety Report 8160916-X (Version None)
Quarter: 2012Q1

REPORT INFORMATION
  Report Type: 
  Country: None (occurrence: None)
  Receive Date: 20120223
  Receipt Date: 20120216
  Transmission Date: 20120608
  Serious: Yes (Other)
  Sender: FDA-Public Use
  Company Number: GB-MERCK-1202GBR00114B1

PATIENT
  Age: 0 Day
  Sex: Male
  Weight: 1 kg

DRUGS (5)
  1. DARUNAVIR [Concomitant]
     Route: 064
     Dates: start: 20110826
  2. NEVIRAPINE [Concomitant]
     Route: 064
     Dates: start: 20120105
  3. EMTRICITABINE AND TENOFOVIR DISOPROXIL FUMARATE [Concomitant]
     Route: 064
     Dates: start: 20110826
  4. RITONAVIR [Concomitant]
     Route: 064
     Dates: start: 20110826
  5. RALTEGRAVIR [Suspect]
     Route: 064
     Dates: start: 20120105

REACTIONS (3)
  - SMALL FOR DATES BABY [None]
  - PREMATURE BABY [None]
  - LOW BIRTH WEIGHT BABY [None]
